FAERS Safety Report 7444560-5 (Version None)
Quarter: 2011Q2

REPORT INFORMATION
  Report Type: 
  Country: None (occurrence: None)
  Receive Date: 20110429
  Receipt Date: 20110414
  Transmission Date: 20111010
  Serious: Yes (Other)
  Sender: FDA-Public Use
  Company Number: US-JNJFOC-20110409835

PATIENT
  Age: 90 Year
  Sex: Female
  Weight: 62.6 kg

DRUGS (4)
  1. SYNTHROID [Concomitant]
     Indication: HYPOTHYROIDISM
     Route: 065
  2. BENADRYL [Suspect]
     Route: 048
  3. LOTREL [Concomitant]
     Indication: HYPERTENSION
     Route: 065
  4. BENADRYL [Suspect]
     Indication: PRURITUS
     Dosage: ONE TEASPOONFUL  AT NIGHT
     Route: 048

REACTIONS (3)
  - PRODUCT QUALITY ISSUE [None]
  - OFF LABEL USE [None]
  - AMNESIA [None]
